FAERS Safety Report 8299006-4 (Version None)
Quarter: 2012Q2

REPORT INFORMATION
  Report Type: 
  Country: None (occurrence: None)
  Receive Date: 20120419
  Receipt Date: 20120413
  Transmission Date: 20120825
  Serious: Yes (Hospitalization)
  Sender: FDA-Public Use
  Company Number: JP-ABBOTT-12P-087-0925722-00

PATIENT
  Sex: Male
  Weight: 63.4 kg

DRUGS (11)
  1. HUMIRA [Suspect]
     Indication: CROHN'S DISEASE
     Route: 058
     Dates: start: 20110412, end: 20110412
  2. FERROUS SULFATE HYDRATE [Concomitant]
     Indication: IRON DEFICIENCY ANAEMIA
     Route: 048
  3. URSODIOL [Concomitant]
     Indication: HEPATIC FUNCTION ABNORMAL
     Route: 048
  4. BETAHISTINE MESILATE [Concomitant]
     Indication: DIZZINESS
     Route: 048
  5. HUMIRA [Suspect]
     Dates: start: 20110510
  6. HUMIRA [Suspect]
     Dates: start: 20110426, end: 20110426
  7. WARFARIN SODIUM [Concomitant]
     Indication: VENA CAVA THROMBOSIS
     Route: 048
  8. AMLODIPINE BESYLATE [Concomitant]
     Indication: HYPERTENSION
     Route: 048
  9. MESALAMINE [Concomitant]
     Indication: CROHN'S DISEASE
     Route: 048
  10. URSODIOL [Concomitant]
     Indication: HEPATIC STEATOSIS
  11. RABEPRAZOLE SODIUM [Concomitant]
     Indication: GASTROOESOPHAGEAL REFLUX DISEASE
     Route: 048

REACTIONS (4)
  - DIARRHOEA [None]
  - ABDOMINAL PAIN [None]
  - SUBILEUS [None]
  - VOMITING [None]
